FAERS Safety Report 5313841-3 (Version None)
Quarter: 2007Q2

REPORT INFORMATION
  Report Type: 
  Country: None (occurrence: None)
  Receive Date: 20070501
  Receipt Date: 20070420
  Transmission Date: 20071010
  Serious: Yes (Other)
  Sender: FDA-Public Use
  Company Number: ES-GLAXOSMITHKLINE-B0444848A

PATIENT
  Sex: Female

DRUGS (2)
  1. LAMICTAL [Suspect]
     Route: 065
  2. ORAL CONTRACEPTIVE (UNSPECIFIED) [Concomitant]
     Indication: CONTRACEPTION
     Route: 048

REACTIONS (5)
  - BLOOD OESTROGEN DECREASED [None]
  - DRUG EXPOSURE DURING PREGNANCY [None]
  - DRUG INTERACTION [None]
  - PREMATURE BABY [None]
  - TOXOPLASMOSIS [None]
